FAERS Safety Report 9514995 (Version 1)
Quarter: 2013Q3

REPORT INFORMATION
  Report Type: Spontaneous
  Country: US (occurrence: US)
  Receive Date: 20130911
  Receipt Date: 20130911
  Transmission Date: 20140515
  Serious: No
  Sender: FDA-Public Use
  Company Number: US-JNJFOC-20130901817

PATIENT
  Age: 59 Year
  Sex: Female
  Weight: 54.43 kg

DRUGS (12)
  1. SANDOZ FENTANYL TRANSDERMAL SYSTEM [Suspect]
     Indication: CLAVICLE FRACTURE
     Route: 062
     Dates: start: 20130831
  2. SANDOZ FENTANYL TRANSDERMAL SYSTEM [Suspect]
     Indication: CLAVICLE FRACTURE
     Route: 062
     Dates: start: 2013, end: 20130830
  3. SANDOZ FENTANYL TRANSDERMAL SYSTEM [Suspect]
     Indication: CLAVICLE FRACTURE
     Route: 062
     Dates: start: 201306, end: 2013
  4. SANDOZ FENTANYL TRANSDERMAL SYSTEM [Suspect]
     Indication: UPPER LIMB FRACTURE
     Route: 062
     Dates: start: 20130831
  5. SANDOZ FENTANYL TRANSDERMAL SYSTEM [Suspect]
     Indication: UPPER LIMB FRACTURE
     Route: 062
     Dates: start: 201306, end: 2013
  6. SANDOZ FENTANYL TRANSDERMAL SYSTEM [Suspect]
     Indication: UPPER LIMB FRACTURE
     Route: 062
     Dates: start: 2013, end: 20130830
  7. SANDOZ FENTANYL TRANSDERMAL SYSTEM [Suspect]
     Indication: RIB FRACTURE
     Route: 062
     Dates: start: 20130831
  8. SANDOZ FENTANYL TRANSDERMAL SYSTEM [Suspect]
     Indication: RIB FRACTURE
     Route: 062
     Dates: start: 2013, end: 20130830
  9. SANDOZ FENTANYL TRANSDERMAL SYSTEM [Suspect]
     Indication: RIB FRACTURE
     Route: 062
     Dates: start: 201306, end: 2013
  10. PROZAC [Concomitant]
     Indication: DEPRESSION
     Route: 048
     Dates: start: 1993
  11. ASPIRIN [Concomitant]
     Indication: HYPERTENSION
     Route: 048
     Dates: start: 201301
  12. LISINOPRIL HCTZ [Concomitant]
     Indication: HYPERTENSION
     Dosage: 20/25 MG
     Route: 048
     Dates: start: 201301

REACTIONS (6)
  - Hyperhidrosis [Not Recovered/Not Resolved]
  - Inappropriate schedule of drug administration [Recovered/Resolved]
  - Nausea [Not Recovered/Not Resolved]
  - Vomiting [Recovered/Resolved]
  - Wrong technique in drug usage process [Not Recovered/Not Resolved]
  - Wrong technique in drug usage process [Recovered/Resolved]
